FAERS Safety Report 6753265-5 (Version None)
Quarter: 2010Q2

REPORT INFORMATION
  Report Type: 
  Country: None (occurrence: None)
  Receive Date: 20100603
  Receipt Date: 20100525
  Transmission Date: 20101027
  Serious: Yes (Other)
  Sender: FDA-Public Use
  Company Number: PHHY2010ES34881

PATIENT
  Age: 64 Year
  Sex: Female

DRUGS (2)
  1. DEFERASIROX [Suspect]
     Indication: ACUTE MYELOID LEUKAEMIA
     Dosage: 1250 MG PER DAY
  2. DEFERASIROX [Suspect]
     Indication: IRON OVERLOAD

REACTIONS (8)
  - BLOOD BILIRUBIN INCREASED [None]
  - BLOOD CREATININE INCREASED [None]
  - HEPATIC ENZYME INCREASED [None]
  - PRURITUS GENERALISED [None]
  - PYREXIA [None]
  - RASH MACULO-PAPULAR [None]
  - SKIN LESION [None]
  - TYPE IV HYPERSENSITIVITY REACTION [None]
